FAERS Safety Report 26117104 (Version 1)
Quarter: 2025Q4

REPORT INFORMATION
  Report Type: Spontaneous
  Country: US (occurrence: US)
  Receive Date: 20251203
  Receipt Date: 20251203
  Transmission Date: 20260117
  Serious: Yes (Hospitalization, Other)
  Sender: SANDOZ
  Company Number: US-SANDOZ-SDZ2025US090244

PATIENT
  Sex: Female

DRUGS (1)
  1. HYRIMOZ [Suspect]
     Active Substance: ADALIMUMAB-ADAZ
     Indication: Retinal vasculitis
     Dosage: 40 MG, Q2W
     Route: 058

REACTIONS (2)
  - COVID-19 pneumonia [Unknown]
  - Product use in unapproved indication [Unknown]
